FAERS Safety Report 20511011 (Version 1)
Quarter: 2022Q1

REPORT INFORMATION
  Report Type: Spontaneous
  Country: US (occurrence: US)
  Receive Date: 20220224
  Receipt Date: 20220224
  Transmission Date: 20220423
  Serious: Yes (Other)
  Sender: FDA-Public Use
  Company Number: US-AVET LIFESCIENCES LTD-2022-AVET-000034

PATIENT
  Age: 8 Year
  Sex: Male

DRUGS (5)
  1. AMANTADINE HYDROCHLORIDE [Suspect]
     Active Substance: AMANTADINE HYDROCHLORIDE
     Indication: Tardive dyskinesia
     Dosage: 100 MILLIGRAM, QD
  2. RISPERIDONE [Suspect]
     Active Substance: RISPERIDONE
     Indication: Product used for unknown indication
     Dosage: 0.5 MILLIGRAM, 5 TIMES DAILY
  3. CLONIDINE [Concomitant]
     Active Substance: CLONIDINE
     Dosage: 0.1 MILLIGRAM, BID
  4. LISDEXAMFETAMINE [Concomitant]
     Active Substance: LISDEXAMFETAMINE
     Dosage: 60 MILLIGRAM DAILY
  5. VALPROIC ACID [Concomitant]
     Active Substance: VALPROIC ACID
     Dosage: 500 MILLIGRAM DAILY

REACTIONS (7)
  - Corneal oedema [Recovered/Resolved]
  - Toxicity to various agents [Unknown]
  - Neurodevelopmental disorder [Unknown]
  - Condition aggravated [Unknown]
  - Visual impairment [Recovering/Resolving]
  - Tardive dyskinesia [Recovering/Resolving]
  - Off label use [Unknown]
